FAERS Safety Report 22595367 (Version 1)
Quarter: 2023Q2

REPORT INFORMATION
  Report Type: Spontaneous
  Country: ES (occurrence: ES)
  Receive Date: 20230613
  Receipt Date: 20230613
  Transmission Date: 20230721
  Serious: Yes (Hospitalization)
  Sender: FDA-Public Use
  Company Number: None

PATIENT
  Age: 66 Year
  Sex: Male

DRUGS (10)
  1. OXALIPLATIN [Interacting]
     Active Substance: OXALIPLATIN
     Indication: Colon neoplasm
     Dosage: CYCLICAL, 5TH CYCLE FREQUENCY UNIT: 0 CYCLIC
     Route: 042
     Dates: start: 20131029, end: 20131101
  2. RALTITREXED [Interacting]
     Active Substance: RALTITREXED
     Indication: Colon neoplasm
     Dosage: CYCLICAL, 5TH CYCLE, FREQUENCY UNIT: 0 CYCLIC
     Route: 042
     Dates: start: 20131029, end: 20131101
  3. ASPIRIN [Concomitant]
     Active Substance: ASPIRIN
     Dosage: DOSE: 100 MILLIGRAMS 1 FREQUENCY: 1 DAY, 30 TABLET
     Route: 048
  4. CRESTOR [Concomitant]
     Active Substance: ROSUVASTATIN CALCIUM
     Dosage: DOSE: 20 MILLIGRAMS FREQUENCY 1 DAY, 28 TABLETS
     Route: 048
  5. PLAVIX [Concomitant]
     Active Substance: CLOPIDOGREL BISULFATE
     Dosage: UNK, 28 TABLETS
     Route: 048
  6. IRON [Concomitant]
     Active Substance: IRON
     Dosage: UNK, 30 SHATCHES
     Route: 048
  7. OMEPRAZOLE [Concomitant]
     Active Substance: OMEPRAZOLE
     Dosage: DOSE: 20 MG-MILLIGRAMS, FREQUENCY UNIT: 1 DAY
     Route: 048
  8. CALCITRIOL [Concomitant]
     Active Substance: CALCITRIOL
     Dosage: UNK
     Route: 048
  9. METOPROLOL TARTRATE [Concomitant]
     Active Substance: METOPROLOL TARTRATE
     Dosage: DOSE: 50 MG-MILLIGRAMS FREQUENCY: 1 DAY, 40 TABLET
     Route: 048
  10. Pritor [Concomitant]
     Dosage: DOSE: 40 MILLIGRAMS FREQUENCY: 1 DAY, 28 TABLETS
     Route: 048

REACTIONS (2)
  - Pancytopenia [Recovered/Resolved]
  - Drug interaction [Unknown]

NARRATIVE: CASE EVENT DATE: 20131109
